FAERS Safety Report 7137584-9 (Version None)
Quarter: 2010Q4

REPORT INFORMATION
  Report Type: 
  Country: None (occurrence: None)
  Receive Date: 20101103
  Receipt Date: 20100513
  Transmission Date: 20110411
  Serious: Yes (Other)
  Sender: FDA-Public Use
  Company Number: 2010S1000271

PATIENT
  Sex: Male
  Weight: 80.7 kg

DRUGS (1)
  1. CUBICIN [Suspect]
     Indication: BACTERAEMIA
     Dosage: 6.2 MG/KG Q24H; IV
     Route: 042

REACTIONS (1)
  - EOSINOPHILIC PNEUMONIA [None]
